FAERS Safety Report 8784155 (Version 1)
Quarter: 2012Q4

REPORT INFORMATION
  Report Type: Report from Study
  Country: US (occurrence: US)
  Receive Date: 20120913
  Receipt Date: 20120913
  Transmission Date: 20130627
  Serious: No
  Sender: FDA-Public Use
  Company Number: US-VERTEX PHARMACEUTICAL INC.-AE-2012-009526

PATIENT
  Sex: Male
  Weight: 90.91 kg

DRUGS (13)
  1. INCIVEK [Suspect]
     Indication: HEPATITIS C
     Route: 048
  2. PEGINTRON REDIPEN [Concomitant]
     Indication: HEPATITIS C
  3. RIBAVIRIN [Concomitant]
     Indication: HEPATITIS C
  4. XANAX [Concomitant]
  5. LASIX [Concomitant]
  6. ZYRTEC ALLGY [Concomitant]
  7. ZOLOFT [Concomitant]
  8. OXYCODONE [Concomitant]
  9. ZANTAC [Concomitant]
  10. ASA LOW DOSE EC [Concomitant]
  11. AVINZA [Concomitant]
  12. VIT D [Concomitant]
  13. ALTACE [Concomitant]

REACTIONS (5)
  - Balance disorder [Unknown]
  - Incoherent [Unknown]
  - Pyrexia [Unknown]
  - Decreased appetite [Unknown]
  - Dysgeusia [Unknown]
